FAERS Safety Report 23617752 (Version 2)
Quarter: 2025Q4

REPORT INFORMATION
  Report Type: Spontaneous
  Country: US (occurrence: US)
  Receive Date: 20240311
  Receipt Date: 20251112
  Transmission Date: 20260118
  Serious: No
  Sender: SANOFI AVENTIS
  Company Number: US-SA-SAC20240308000245

PATIENT
  Age: 68 Year
  Sex: Male
  Weight: 136 kg

DRUGS (25)
  1. DUPIXENT [Suspect]
     Active Substance: DUPILUMAB
     Indication: Chronic rhinosinusitis with nasal polyps
     Dosage: 300 MG, QOW
     Route: 058
     Dates: start: 20230312
  2. WEGOVY [Suspect]
     Active Substance: SEMAGLUTIDE
  3. FLUTICASONE PROPIONATE [Concomitant]
     Active Substance: FLUTICASONE PROPIONATE
  4. ROPINIROLE [Concomitant]
     Active Substance: ROPINIROLE
  5. ATORVASTATIN CALCIUM [Concomitant]
     Active Substance: ATORVASTATIN CALCIUM
  6. SYMBICORT [Concomitant]
     Active Substance: BUDESONIDE\FORMOTEROL FUMARATE DIHYDRATE
  7. HYDROCHLOROTHIAZIDE\LOSARTAN [Concomitant]
     Active Substance: HYDROCHLOROTHIAZIDE\LOSARTAN
  8. VITAMIN B12 [Concomitant]
     Active Substance: CYANOCOBALAMIN
  9. ELIQUIS [Concomitant]
     Active Substance: APIXABAN
  10. PROAIR RESPICLICK [Concomitant]
     Active Substance: ALBUTEROL SULFATE
  11. ASPIRIN [Concomitant]
     Active Substance: ASPIRIN
  12. SODIUM CHLORIDE [Concomitant]
     Active Substance: SODIUM CHLORIDE
  13. PANTOPRAZOLE SODIUM [Concomitant]
     Active Substance: PANTOPRAZOLE SODIUM
  14. MAGNESIUM [Concomitant]
     Active Substance: MAGNESIUM
  15. VITAMINS NOS [Concomitant]
     Active Substance: VITAMINS
  16. EUFLEXXA [Concomitant]
     Active Substance: HYALURONATE SODIUM
  17. TYLENOL [Concomitant]
     Active Substance: ACETAMINOPHEN
     Dosage: 8 HOUR 650 MG
  18. TRIAMCINOLONE ACETONIDE [Concomitant]
     Active Substance: TRIAMCINOLONE ACETONIDE
  19. OMEPRAZOLE [Concomitant]
     Active Substance: OMEPRAZOLE
  20. AMLODIPINE BESYLATE [Concomitant]
     Active Substance: AMLODIPINE BESYLATE
  21. METOPROLOL SUCCINATE [Concomitant]
     Active Substance: METOPROLOL SUCCINATE
  22. KETOCONAZOLE [Concomitant]
     Active Substance: KETOCONAZOLE
  23. DOXEPIN HYDROCHLORIDE [Concomitant]
     Active Substance: DOXEPIN HYDROCHLORIDE
  24. BUMETANIDE [Concomitant]
     Active Substance: BUMETANIDE
  25. ALBUTEROL SULFATE [Concomitant]
     Active Substance: ALBUTEROL SULFATE

REACTIONS (3)
  - Nasal discomfort [Unknown]
  - Gastrooesophageal reflux disease [Unknown]
  - Nausea [Unknown]

NARRATIVE: CASE EVENT DATE: 20251001
